FAERS Safety Report 22184485 (Version 1)
Quarter: 2023Q2

REPORT INFORMATION
  Report Type: Report from Study
  Country: US (occurrence: US)
  Receive Date: 20230407
  Receipt Date: 20230407
  Transmission Date: 20230721
  Serious: No
  Sender: FDA-Public Use
  Company Number: US-002147023-NVSC2023US080297

PATIENT
  Age: 90 Year
  Sex: Male

DRUGS (2)
  1. ENTRESTO [Suspect]
     Active Substance: SACUBITRIL\VALSARTAN
     Indication: Cardiac failure
     Dosage: 1 DOSAGE FORM (24/26 MG), BID
     Route: 048
     Dates: start: 202209
  2. ACITRETIN [Concomitant]
     Active Substance: ACITRETIN
     Indication: Product used for unknown indication
     Dosage: UNK
     Route: 065

REACTIONS (8)
  - Weight fluctuation [Not Recovered/Not Resolved]
  - Fluid retention [Unknown]
  - Psoriasis [Not Recovered/Not Resolved]
  - Pruritus [Unknown]
  - Eczema [Not Recovered/Not Resolved]
  - Skin fissures [Unknown]
  - Fatigue [Unknown]
  - Inappropriate schedule of product administration [Unknown]

NARRATIVE: CASE EVENT DATE: 20221001
